FAERS Safety Report 9361718 (Version 1)
Quarter: 2013Q2

REPORT INFORMATION
  Report Type: Spontaneous
  Country: US (occurrence: US)
  Receive Date: 20130621
  Receipt Date: 20130621
  Transmission Date: 20140414
  Serious: Yes (Hospitalization, Other)
  Sender: FDA-Public Use
  Company Number: US-TEVA-414148USA

PATIENT
  Age: 26 Year
  Sex: Female
  Weight: 68.1 kg

DRUGS (1)
  1. PARAGARD 380A [Suspect]
     Indication: CONTRACEPTION
     Route: 015
     Dates: start: 2008, end: 201003

REACTIONS (7)
  - Vomiting [Recovered/Resolved]
  - Gait disturbance [Recovered/Resolved]
  - Abdominal pain [Recovered/Resolved]
  - Fallopian tube disorder [Recovered/Resolved]
  - Fallopian tube operation [Recovered/Resolved]
  - Ectopic pregnancy with intrauterine device [Recovered/Resolved]
  - Drug ineffective [Recovered/Resolved]
